FAERS Safety Report 6538557 (Version 2)
Quarter: 2024Q1

REPORT INFORMATION
  Report Type: Spontaneous
  Country: ES (occurrence: ES)
  Receive Date: 20080130
  Receipt Date: 20240315
  Transmission Date: 20240410
  Serious: Yes (Other)
  Sender: FDA-Public Use
  Company Number: ES-ELI_LILLY_AND_COMPANY-ES200801003733

PATIENT
  Age: 77 Year
  Sex: Male

DRUGS (2)
  1. GEMZAR [Suspect]
     Active Substance: GEMCITABINE HYDROCHLORIDE
     Indication: Renal cell carcinoma
     Dosage: 1250 MG/M2, UNKNOWN
     Route: 042
     Dates: start: 200701, end: 200710
  2. XELODA [Suspect]
     Active Substance: CAPECITABINE
     Indication: Renal cell carcinoma
     Dosage: 1000 MG/M2, UNKNOWN
     Route: 048
     Dates: start: 200701, end: 200710

REACTIONS (2)
  - Amnesia [Not Recovered/Not Resolved]
  - Memory impairment [Not Recovered/Not Resolved]

NARRATIVE: CASE EVENT DATE: 20071001
